FAERS Safety Report 4544076-X (Version None)
Quarter: 2005Q1

REPORT INFORMATION
  Report Type: 
  Country: None (occurrence: None)
  Receive Date: 20050104
  Receipt Date: 20041230
  Transmission Date: 20050727
  Serious: Yes (Hospitalization, Other)
  Sender: FDA-Public Use
  Company Number: DE-MERCK-0412DEU00240

PATIENT
  Age: 61 Year
  Sex: Female

DRUGS (2)
  1. VIOXX [Suspect]
     Indication: SYSTEMIC LUPUS ERYTHEMATOSUS
     Route: 048
     Dates: start: 20010613, end: 20041008
  2. CORTISONE [Concomitant]
     Indication: SYSTEMIC LUPUS ERYTHEMATOSUS
     Route: 048

REACTIONS (4)
  - BLOOD PRESSURE INCREASED [None]
  - EYE DISORDER [None]
  - FEELING ABNORMAL [None]
  - LOSS OF CONSCIOUSNESS [None]
